FAERS Safety Report 5225996-X (Version None)
Quarter: 2007Q1

REPORT INFORMATION
  Report Type: 
  Country: None (occurrence: None)
  Receive Date: 20070201
  Receipt Date: 20070125
  Transmission Date: 20070707
  Serious: Yes (Hospitalization)
  Sender: FDA-Public Use
  Company Number: FR-AVENTIS-200710314FR

PATIENT
  Age: 80 Year
  Sex: Female

DRUGS (21)
  1. DI-ANTALVIC                        /00220901/ [Suspect]
     Route: 048
     Dates: start: 20061129, end: 20061216
  2. LOVENOX [Suspect]
     Route: 058
     Dates: start: 20061129, end: 20061216
  3. DEXTRARINE PHENYLBUTAZONE          /00839301/ [Suspect]
     Route: 061
     Dates: start: 20061015, end: 20061216
  4. INIPOMP                            /01263201/ [Suspect]
     Route: 048
     Dates: start: 20061129, end: 20061216
  5. RISPERDAL [Suspect]
     Route: 048
     Dates: start: 20060615, end: 20061216
  6. CHONDROSULF [Suspect]
     Route: 048
     Dates: start: 20060615, end: 20061216
  7. ARICEPT [Suspect]
     Route: 048
     Dates: start: 20060615, end: 20061216
  8. ACUPAN [Suspect]
     Route: 042
     Dates: start: 20061130, end: 20061216
  9. ZOPHREN                            /00955301/ [Suspect]
     Route: 042
     Dates: start: 20061129, end: 20061129
  10. SUFENTA [Suspect]
     Route: 042
     Dates: start: 20061129, end: 20061129
  11. DIPRIVAN [Suspect]
     Route: 042
     Dates: start: 20061129, end: 20061129
  12. PARIET [Concomitant]
     Route: 048
  13. ACETAMINOPHEN [Concomitant]
  14. CEFAMANDOL [Concomitant]
  15. DAFALGAN                           /00020001/ [Concomitant]
     Route: 048
  16. ULCAR                              /00434701/ [Concomitant]
     Route: 048
  17. CLAVENTIN                          /00973701/ [Concomitant]
     Route: 042
  18. TEICOPLANINE [Concomitant]
  19. PRIMPERAN                          /00041901/ [Concomitant]
  20. GRANOCYTE [Concomitant]
  21. ARIXTRA [Concomitant]
     Route: 058

REACTIONS (1)
  - AGRANULOCYTOSIS [None]
